FAERS Safety Report 5616366-0 (Version None)
Quarter: 2008Q1

REPORT INFORMATION
  Report Type: 
  Country: None (occurrence: None)
  Receive Date: 20080205
  Receipt Date: 20080205
  Transmission Date: 20080703
  Serious: Yes (Other)
  Sender: FDA-Public Use
  Company Number: None

PATIENT
  Age: 90 Year
  Sex: Female

DRUGS (1)
  1. DILANTIN [Suspect]
     Dosage: 5CC QID PO
     Route: 048
     Dates: start: 20080118, end: 20080119

REACTIONS (4)
  - DRUG DISPENSING ERROR [None]
  - LETHARGY [None]
  - MEDICATION ERROR [None]
  - WRONG DRUG ADMINISTERED [None]
